FAERS Safety Report 14631396 (Version 1)
Quarter: 2018Q1

REPORT INFORMATION
  Report Type: Spontaneous
  Country: DE (occurrence: DE)
  Receive Date: 20180313
  Receipt Date: 20180313
  Transmission Date: 20180509
  Serious: Yes (Life-Threatening, Hospitalization)
  Sender: FDA-Public Use
  Company Number: PHHY2018DE021151

PATIENT
  Sex: Male

DRUGS (2)
  1. EXJADE [Suspect]
     Active Substance: DEFERASIROX
     Indication: HAEMOSIDEROSIS
  2. EXJADE [Suspect]
     Active Substance: DEFERASIROX
     Indication: THALASSAEMIA BETA
     Dosage: 540 MG, QD
     Route: 048

REACTIONS (2)
  - Gastrointestinal haemorrhage [Recovered/Resolved]
  - Hypovolaemic shock [Recovered/Resolved]

NARRATIVE: CASE EVENT DATE: 20180127
